FAERS Safety Report 6176786-5 (Version None)
Quarter: 2009Q2

REPORT INFORMATION
  Report Type: 
  Country: None (occurrence: None)
  Receive Date: 20090501
  Receipt Date: 20080804
  Transmission Date: 20091009
  Serious: Yes (Other)
  Sender: FDA-Public Use
  Company Number: US-ALEXION-A200700113

PATIENT

DRUGS (23)
  1. SOLIRIS [Suspect]
     Indication: PAROXYSMAL NOCTURNAL HAEMOGLOBINURIA
     Dosage: 600 MG, SINGLE
     Route: 042
     Dates: start: 20071128, end: 20071128
  2. SOLIRIS [Suspect]
     Dosage: 600 MG, SINGLE
     Route: 042
     Dates: start: 20071205, end: 20071205
  3. SOLIRIS [Suspect]
     Dosage: 900 MG, SINGLE
     Route: 042
     Dates: start: 20080109, end: 20080109
  4. SOLIRIS [Suspect]
     Dosage: 900 MG, SINGLE
     Route: 042
     Dates: start: 20080123, end: 20080123
  5. SOLIRIS [Suspect]
     Dosage: 900 MG, SINGLE
     Route: 042
     Dates: start: 20080206, end: 20080206
  6. SOLIRIS [Suspect]
     Dosage: 900 MG, SINGLE
     Route: 042
     Dates: start: 20080218, end: 20080218
  7. SOLIRIS [Suspect]
     Dosage: 600 MG, SINGLE
     Route: 042
     Dates: start: 20080519, end: 20080519
  8. SOLIRIS [Suspect]
     Dosage: 600 MG, SINGLE
     Route: 042
     Dates: start: 20080519, end: 20080519
  9. SOLIRIS [Suspect]
     Dosage: 600 MG, SINGLE
     Route: 042
     Dates: start: 20080526, end: 20080526
  10. SOLIRIS [Suspect]
     Dosage: 600 MG, SINGLE
     Route: 042
     Dates: start: 20080602, end: 20080602
  11. SOLIRIS [Suspect]
     Dosage: 600 MG, SINGLE
     Route: 042
     Dates: start: 20080609, end: 20080609
  12. SOLIRIS [Suspect]
     Dosage: 900 MG, SINGLE
     Route: 042
     Dates: start: 20080616, end: 20080616
  13. SOLIRIS [Suspect]
     Dosage: UNK, SINGLE
     Route: 042
     Dates: start: 20080702, end: 20080702
  14. SOLIRIS [Suspect]
     Dosage: 900 MG, SINGLE
     Route: 042
     Dates: start: 20080709, end: 20080709
  15. SOLIRIS [Suspect]
     Dosage: 900 MG, SINGLE
     Route: 042
     Dates: start: 20080723, end: 20080723
  16. TYLENOL (CAPLET) [Concomitant]
     Indication: PROPHYLAXIS
     Dosage: 2 TABS PRE-INFUSION AND POST-INFUSION
     Route: 048
     Dates: start: 20071128, end: 20080723
  17. TYLENOL (CAPLET) [Concomitant]
     Dates: start: 20071130, end: 20071130
  18. FOLIC ACID [Concomitant]
     Indication: PAROXYSMAL NOCTURNAL HAEMOGLOBINURIA
     Dosage: 2 MG, EVERY MORNING
     Route: 048
  19. FOLIC ACID [Concomitant]
     Dosage: 3 MG, EVERY NIGHT
     Route: 048
  20. ARIXTRA [Concomitant]
     Indication: ANTICOAGULANT THERAPY
     Dosage: 5 MG, FOUR TO FIVE TIMES WEEKLY
     Route: 051
  21. MAGNESIUM SULFATE [Concomitant]
     Dosage: 3 MG, QD
     Route: 048
  22. CYCLOSPORINE [Concomitant]
     Dosage: 275 MG, EVERY MORNING
     Route: 048
  23. CYCLOSPORINE [Concomitant]
     Dosage: 300 MG,EVERY NIGHT
     Route: 048

REACTIONS (17)
  - BLOOD IRON INCREASED [None]
  - CHEST PAIN [None]
  - CHROMATURIA [None]
  - COUGH [None]
  - DYSPHAGIA [None]
  - DYSPNOEA [None]
  - FATIGUE [None]
  - GLOMERULAR FILTRATION RATE DECREASED [None]
  - HAEMOGLOBIN DECREASED [None]
  - HEADACHE [None]
  - HYPERSENSITIVITY [None]
  - INFUSION RELATED REACTION [None]
  - MIGRAINE [None]
  - MUSCLE SPASMS [None]
  - NECK PAIN [None]
  - PYREXIA [None]
  - SINUS HEADACHE [None]
